FAERS Safety Report 15155802 (Version 1)
Quarter: 2018Q3

REPORT INFORMATION
  Report Type: Spontaneous
  Country: AT (occurrence: AT)
  Receive Date: 20180717
  Receipt Date: 20180717
  Transmission Date: 20181010
  Serious: Yes (Other)
  Sender: FDA-Public Use
  Company Number: AT-US WORLDMEDS, LLC-STA_00017918

PATIENT
  Age: 77 Year
  Sex: Female
  Weight: 45 kg

DRUGS (12)
  1. PANTOLOC 20MG [Concomitant]
     Indication: PRODUCT USED FOR UNKNOWN INDICATION
  2. ATARAX [Concomitant]
     Active Substance: HYDROXYZINE HYDROCHLORIDE
     Indication: PRODUCT USED FOR UNKNOWN INDICATION
  3. MAGNESIUM VERLA [Concomitant]
     Active Substance: MAGNESIUM
     Indication: PRODUCT USED FOR UNKNOWN INDICATION
  4. MADOPAR CR [Concomitant]
     Active Substance: BENSERAZIDE HYDROCHLORIDE\LEVODOPA
     Indication: PRODUCT USED FOR UNKNOWN INDICATION
  5. SPIROBENE 50MG [Concomitant]
     Indication: PRODUCT USED FOR UNKNOWN INDICATION
  6. SIRDALUD 4MG [Concomitant]
     Indication: PRODUCT USED FOR UNKNOWN INDICATION
  7. CONCOR 5MG [Concomitant]
     Indication: PRODUCT USED FOR UNKNOWN INDICATION
  8. APOMORPHINE HYDROCHLORIDE [Suspect]
     Active Substance: APOMORPHINE HYDROCHLORIDE
     Indication: PARKINSON^S DISEASE
     Route: 058
     Dates: start: 20140127
  9. STALEVO 50MG [Concomitant]
     Indication: PRODUCT USED FOR UNKNOWN INDICATION
  10. FURON [Concomitant]
     Active Substance: FUROSEMIDE
     Indication: PRODUCT USED FOR UNKNOWN INDICATION
  11. APO?GO PEN 10 MG/ML INJ.LSG. [Suspect]
     Active Substance: APOMORPHINE HYDROCHLORIDE
     Indication: PARKINSON^S DISEASE
     Route: 058
  12. SEROQUEL [Concomitant]
     Active Substance: QUETIAPINE FUMARATE
     Indication: PRODUCT USED FOR UNKNOWN INDICATION

REACTIONS (4)
  - Skin disorder [Recovered/Resolved]
  - Injection site nodule [Recovering/Resolving]
  - Necrosis [Not Recovered/Not Resolved]
  - Injection site discolouration [Recovered/Resolved]

NARRATIVE: CASE EVENT DATE: 20140201
